FAERS Safety Report 9285158 (Version 1)
Quarter: 2013Q2

REPORT INFORMATION
  Report Type: Spontaneous
  Country: US (occurrence: US)
  Receive Date: 20130513
  Receipt Date: 20130513
  Transmission Date: 20140414
  Serious: No
  Sender: FDA-Public Use
  Company Number: US-MYLANLABS-2013S1006739

PATIENT
  Age: 61 Year
  Sex: Female
  Weight: 63.5 kg

DRUGS (2)
  1. MORPHINE SULFATE EXTENDED-RELEASE TABLETS [Suspect]
     Indication: PERINEURIAL CYST
     Route: 048
     Dates: start: 20130319, end: 20130324
  2. MIRALAX /00754501/ [Concomitant]
     Indication: CONSTIPATION
     Route: 048

REACTIONS (1)
  - Diarrhoea [Recovered/Resolved]
